FAERS Safety Report 17490918 (Version 3)
Quarter: 2020Q1

REPORT INFORMATION
  Report Type: Report from Study
  Country: MX (occurrence: MX)
  Receive Date: 20200303
  Receipt Date: 20200330
  Transmission Date: 20200409
  Serious: Yes (Disabling, Other)
  Sender: FDA-Public Use
  Company Number: NVSC2020MX060110

PATIENT
  Sex: Male
  Weight: 90 kg

DRUGS (7)
  1. EXFORGE HCT [Suspect]
     Active Substance: AMLODIPINE BESYLATE\HYDROCHLOROTHIAZIDE\VALSARTAN
     Indication: CARDIAC FAILURE
  2. HYDROCHLOROTHIAZIDE. [Concomitant]
     Active Substance: HYDROCHLOROTHIAZIDE
     Indication: BLOOD PRESSURE ABNORMAL
     Dosage: UNK (3 YEARS AGO)
     Route: 048
  3. EXFORGE [Suspect]
     Active Substance: AMLODIPINE BESYLATE\VALSARTAN
     Indication: HYPERTENSION
     Dosage: 1 DF, QD (3 YEARS AGO)
     Route: 048
  4. EXFORGE HCT [Suspect]
     Active Substance: AMLODIPINE BESYLATE\HYDROCHLOROTHIAZIDE\VALSARTAN
     Indication: BLOOD PRESSURE INCREASED
     Dosage: 1 DF (10/325/25 MG), QD
     Route: 048
     Dates: start: 2014
  5. FERROTEMP [Concomitant]
     Indication: ANAEMIA
     Dosage: 1 DF, QD (3 YEARS AGO)
     Route: 048
  6. PRAVASTATIN. [Concomitant]
     Active Substance: PRAVASTATIN
     Indication: PROPHYLAXIS
     Dosage: 1 DF, QD (5 YEARS AGO)
     Route: 048
  7. ASPIRINA INFANTIL [Concomitant]
     Indication: PROPHYLAXIS
     Dosage: 1 DF, QD (10 YEARS AGO)
     Route: 048

REACTIONS (6)
  - Pneumonia [Recovered/Resolved]
  - Pleural effusion [Recovered/Resolved]
  - Product use in unapproved indication [Unknown]
  - Weight decreased [Not Recovered/Not Resolved]
  - Wrong product administered [Not Recovered/Not Resolved]
  - Pneumonia [Recovered/Resolved]

NARRATIVE: CASE EVENT DATE: 2014
